FAERS Safety Report 23596076 (Version 2)
Quarter: 2024Q4

REPORT INFORMATION
  Report Type: Spontaneous
  Country: BR (occurrence: BR)
  Receive Date: 20240305
  Receipt Date: 20241030
  Transmission Date: 20250115
  Serious: Yes (Other)
  Sender: BAYER HEALTHCARE PHARMACEUTICALS INC.
  Company Number: BR-BAYER-2024A030951

PATIENT
  Age: 42 Year
  Sex: Female

DRUGS (1)
  1. KYLEENA [Suspect]
     Active Substance: LEVONORGESTREL
     Dosage: 17.5?G/DAY
     Route: 015
     Dates: start: 20230116, end: 20240310

REACTIONS (3)
  - Device breakage [None]
  - Complication of device removal [None]
  - Device use issue [None]

NARRATIVE: CASE EVENT DATE: 20230928
